FAERS Safety Report 7201026-5 (Version None)
Quarter: 2010Q4

REPORT INFORMATION
  Report Type: 
  Country: None (occurrence: None)
  Receive Date: 20101228
  Receipt Date: 20101223
  Transmission Date: 20110411
  Serious: Yes (Other)
  Sender: FDA-Public Use
  Company Number: IT-BRISTOL-MYERS SQUIBB COMPANY-15460405

PATIENT
  Age: 85 Year
  Sex: Male

DRUGS (4)
  1. COUMADIN [Suspect]
     Indication: CARDIAC DISORDER
     Dates: start: 20070101, end: 20101004
  2. ENALAPRIL MALEATE AND HYDROCHLOROTHIAZIDE [Suspect]
     Indication: HYPERTENSION
     Dosage: 1DF=ENALAPRIL/HCTZ 20/12.5 MG
     Dates: start: 20070101, end: 20101004
  3. BISOPROLOL FUMARATE [Concomitant]
  4. SEACOR [Concomitant]

REACTIONS (1)
  - CARDIAC FAILURE [None]
